FAERS Safety Report 5741417-2 (Version None)
Quarter: 2008Q2

REPORT INFORMATION
  Report Type: 
  Country: None (occurrence: None)
  Receive Date: 20080514
  Receipt Date: 20080428
  Transmission Date: 20081010
  Serious: Yes (Hospitalization, Other)
  Sender: FDA-Public Use
  Company Number: 2008BI009081

PATIENT
  Age: 28 Year
  Sex: Female
  Weight: 77.1115 kg

DRUGS (9)
  1. TYSABRI [Suspect]
     Indication: MULTIPLE SCLEROSIS
     Dosage: 300 MG;QM;IV
     Route: 042
     Dates: start: 20071107
  2. HEPARIN [Concomitant]
  3. EMPRACET [Concomitant]
  4. SERAX [Concomitant]
  5. NEXIUM [Concomitant]
  6. IMOVANE [Concomitant]
  7. SOLU-MEDROL [Concomitant]
  8. SERAX [Concomitant]
  9. NAPROSYN [Concomitant]

REACTIONS (9)
  - ABDOMINAL PAIN UPPER [None]
  - DISEASE PROGRESSION [None]
  - DRUG HYPERSENSITIVITY [None]
  - GUILLAIN-BARRE SYNDROME [None]
  - LOSS OF CONSCIOUSNESS [None]
  - MULTIPLE SCLEROSIS RELAPSE [None]
  - PITUITARY CYST [None]
  - STEVENS-JOHNSON SYNDROME [None]
  - THROMBOPHLEBITIS [None]
